FAERS Safety Report 6639860-2 (Version None)
Quarter: 2010Q1

REPORT INFORMATION
  Report Type: 
  Country: None (occurrence: None)
  Receive Date: 20100318
  Receipt Date: 20100309
  Transmission Date: 20100710
  Serious: Yes (Hospitalization, Other)
  Sender: FDA-Public Use
  Company Number: US-BRISTOL-MYERS SQUIBB COMPANY-15010291

PATIENT
  Age: 62 Year
  Sex: Female
  Weight: 99 kg

DRUGS (24)
  1. CARBOPLATIN [Suspect]
     Indication: LUNG CARCINOMA CELL TYPE UNSPECIFIED STAGE IV
     Dates: start: 20090821
  2. TAXOL [Suspect]
     Indication: LUNG CARCINOMA CELL TYPE UNSPECIFIED STAGE IV
     Dates: start: 20090821
  3. PLAVIX [Suspect]
     Dosage: RESUMED ON 16FEB10
     Route: 048
     Dates: start: 20060501
  4. AVASTIN [Suspect]
     Indication: LUNG CARCINOMA CELL TYPE UNSPECIFIED STAGE IV
     Dates: start: 20090821
  5. AREDIA [Suspect]
     Indication: LUNG CARCINOMA CELL TYPE UNSPECIFIED STAGE IV
     Dosage: SECOND CYCLE ON 23FEB10
     Dates: start: 20090821
  6. ALIMTA [Suspect]
     Indication: LUNG CARCINOMA CELL TYPE UNSPECIFIED STAGE IV
     Dosage: SECOND CYCLE ON 23FEB10
     Dates: start: 20100202
  7. THEO-DUR [Concomitant]
     Route: 048
  8. SYNTHROID [Concomitant]
  9. SLOW-K [Concomitant]
  10. COMBIVENT [Concomitant]
     Dosage: DF=PUFF
     Route: 055
  11. GLUCOPHAGE [Concomitant]
     Dosage: 3 TABS AFTER DINNER
     Dates: start: 20020101
  12. HYDROCHLOROTHIAZIDE [Concomitant]
  13. TEKTURNA [Concomitant]
     Route: 048
     Dates: start: 20080714
  14. COZAAR [Concomitant]
     Dosage: DF=100MG TO 50MG(ON HOLD SINCE 10FEB10)
     Route: 048
  15. ZANTAC [Concomitant]
     Dosage: 150MG TAKEN IN THE FOR LAST 1 YEAR
     Route: 048
  16. COMPAZINE [Concomitant]
     Dosage: DAILY AS NEEDED(AFTER CHEMOTHERAPY)
     Route: 048
  17. FOLIC ACID [Concomitant]
     Route: 048
  18. VITAMIN D3 [Concomitant]
     Route: 048
  19. VITAMIN B COMPLEX CAP [Concomitant]
     Route: 048
  20. MULTI-VITAMIN [Concomitant]
  21. MAGNESIUM [Concomitant]
  22. OXYGEN [Concomitant]
     Dosage: 2LIT/MIN,THEN 1.5LIT/MIN FOR COUPLE OF YEARS
     Route: 045
  23. BENADRYL [Concomitant]
     Indication: PREMEDICATION
  24. STEROIDS [Concomitant]
     Indication: PREMEDICATION

REACTIONS (8)
  - ALOPECIA [None]
  - DEHYDRATION [None]
  - DIARRHOEA [None]
  - EPISTAXIS [None]
  - HYPOTENSION [None]
  - NAUSEA [None]
  - NEUROPATHY PERIPHERAL [None]
  - UPPER LIMB FRACTURE [None]
